FAERS Safety Report 18554517 (Version 7)
Quarter: 2025Q3

REPORT INFORMATION
  Report Type: Report from Study
  Country: US (occurrence: US)
  Receive Date: 20201127
  Receipt Date: 20250821
  Transmission Date: 20251021
  Serious: Yes (Other)
  Sender: TAKEDA
  Company Number: US-TAKEDA-US202026078

PATIENT
  Sex: Female

DRUGS (2)
  1. HUMAN IMMUNOGLOBULIN G [Suspect]
     Active Substance: HUMAN IMMUNOGLOBULIN G
     Indication: Immunodeficiency common variable
  2. HUMAN IMMUNOGLOBULIN G [Suspect]
     Active Substance: HUMAN IMMUNOGLOBULIN G
     Indication: Primary immunodeficiency syndrome

REACTIONS (13)
  - Adrenal insufficiency [Unknown]
  - Addison^s disease [Not Recovered/Not Resolved]
  - Urine abnormality [Unknown]
  - Thyroid disorder [Not Recovered/Not Resolved]
  - Foot fracture [Unknown]
  - Osteoporosis [Unknown]
  - Bone pain [Unknown]
  - Immunoglobulins decreased [Unknown]
  - Inappropriate schedule of product administration [Unknown]
  - Product distribution issue [Unknown]
  - Product leakage [Unknown]
  - Arthralgia [Unknown]
  - Malaise [Unknown]
